FAERS Safety Report 6389907-6 (Version None)
Quarter: 2009Q4

REPORT INFORMATION
  Report Type: 
  Country: None (occurrence: None)
  Receive Date: 20091006
  Receipt Date: 20090326
  Transmission Date: 20100525
  Serious: No
  Sender: FDA-Public Use
  Company Number: US-BRISTOL-MYERS SQUIBB COMPANY-14554059

PATIENT
  Age: 37 Year
  Sex: Male
  Weight: 64 kg

DRUGS (2)
  1. AVAPRO [Suspect]
     Indication: HYPERTENSION
  2. ALCOHOL [Suspect]

REACTIONS (3)
  - ABDOMINAL DISCOMFORT [None]
  - CHEST PAIN [None]
  - JAUNDICE [None]
